FAERS Safety Report 21297654 (Version 1)
Quarter: 2022Q3

REPORT INFORMATION
  Report Type: Spontaneous
  Country: US (occurrence: US)
  Receive Date: 20220906
  Receipt Date: 20220906
  Transmission Date: 20221027
  Serious: No
  Sender: FDA-Public Use
  Company Number: US-drreddys-SPO/USA/22/0153560

PATIENT
  Age: 26 Year
  Sex: Female

DRUGS (2)
  1. ZENATANE [Suspect]
     Active Substance: ISOTRETINOIN
     Indication: Acne
     Dosage: RMA ISSUE DATE: 07 MARCH 2022 06:13:54 PM, 05 APRIL 2022 06:51:17 PM, 07 MAY 2022 09:39:33 AM, 09 JU
  2. ZENATANE [Suspect]
     Active Substance: ISOTRETINOIN
     Dosage: RMA ISSUE DATE: 28 DECEMBER 2021 04:40:29 PM, 01 FEBRUARY 2022 08:50:07 AM

REACTIONS (1)
  - Rash [Unknown]
